FAERS Safety Report 24029000 (Version 1)
Quarter: 2024Q2

REPORT INFORMATION
  Report Type: Spontaneous
  Country: US (occurrence: None)
  Receive Date: 20240628
  Receipt Date: 20240628
  Transmission Date: 20240716
  Serious: Yes (Hospitalization)
  Sender: FDA-Public Use
  Company Number: US-MLMSERVICE-20240613-PI092581-00198-4

PATIENT
  Age: 49 Year
  Sex: Female

DRUGS (4)
  1. LEVOFLOXACIN [Suspect]
     Active Substance: LEVOFLOXACIN
  2. GABAPENTIN [Concomitant]
     Active Substance: GABAPENTIN
  3. PIPERACILLIN AND TAZOBACTAM [Concomitant]
     Active Substance: PIPERACILLIN SODIUM\TAZOBACTAM SODIUM
  4. MEROPENEM [Concomitant]
     Active Substance: MEROPENEM

REACTIONS (6)
  - Symmetrical drug-related intertriginous and flexural exanthema [Recovered/Resolved]
  - Acute kidney injury [Recovered/Resolved]
  - Pyrexia [Recovered/Resolved]
  - Lymphadenopathy [Recovered/Resolved]
  - Leukocytosis [Recovered/Resolved]
  - Eosinophilia [Recovered/Resolved]
